FAERS Safety Report 9770006 (Version 1)
Quarter: 2013Q4

REPORT INFORMATION
  Report Type: Spontaneous
  Country: US (occurrence: US)
  Receive Date: 20131218
  Receipt Date: 20131218
  Transmission Date: 20140711
  Serious: No
  Sender: FDA-Public Use
  Company Number: US-VERTEX PHARMACEUTICALS INC-AE-2011-000871

PATIENT
  Sex: 0

DRUGS (6)
  1. INCIVEK [Suspect]
     Indication: HEPATITIS C
     Dates: start: 20110806
  2. RIBASPHERE [Concomitant]
     Indication: HEPATITIS C
     Dates: start: 20110806
  3. PEGASYS [Concomitant]
     Indication: HEPATITIS C
     Dates: start: 20110806
  4. NOVOLOG [Concomitant]
     Route: 058
  5. JANUMET [Concomitant]
     Route: 048
  6. LABETALOL [Concomitant]
     Route: 048

REACTIONS (2)
  - Blood glucose increased [Unknown]
  - Diarrhoea [Not Recovered/Not Resolved]
